FAERS Safety Report 9602973 (Version 1)
Quarter: 2013Q4

REPORT INFORMATION
  Report Type: Spontaneous
  Country: US (occurrence: None)
  Receive Date: 20131003
  Receipt Date: 20131003
  Transmission Date: 20140711
  Serious: Yes (Hospitalization)
  Sender: FDA-Public Use
  Company Number: 1918622

PATIENT
  Sex: Male

DRUGS (3)
  1. SODIUM CHLORIDE [Suspect]
     Indication: EPIDURAL INJECTION
     Route: 008
     Dates: start: 20130903, end: 20130903
  2. LIDOCAINE HCL [Suspect]
     Route: 008
  3. DEPO MEDROL [Suspect]
     Route: 008
     Dates: start: 20130903, end: 20130903

REACTIONS (2)
  - Aspergillus infection [None]
  - Meningitis fungal [None]
